FAERS Safety Report 13615229 (Version 1)
Quarter: 2017Q2

REPORT INFORMATION
  Report Type: Spontaneous
  Country: TH (occurrence: TH)
  Receive Date: 20170606
  Receipt Date: 20170606
  Transmission Date: 20170830
  Serious: Yes (Death, Hospitalization)
  Sender: FDA-Public Use
  Company Number: TH-BAXTER-2017BAX022885

PATIENT
  Sex: Male

DRUGS (1)
  1. DIANEAL LOW CALCIUM PERITONEAL DIALYSIS SOLUTION WITH DEXTROSE [Suspect]
     Active Substance: CALCIUM CHLORIDE\DEXTROSE\MAGNESIUM CHLORIDE\SODIUM CHLORIDE\SODIUM LACTATE
     Indication: CHRONIC KIDNEY DISEASE
     Dosage: BAG
     Route: 033
     Dates: start: 20160205, end: 20170601

REACTIONS (2)
  - Sepsis [Fatal]
  - Meningitis fungal [Unknown]

NARRATIVE: CASE EVENT DATE: 2017
